FAERS Safety Report 4465152-6 (Version None)
Quarter: 2004Q3

REPORT INFORMATION
  Report Type: 
  Country: None (occurrence: None)
  Receive Date: 20040929
  Receipt Date: 20040909
  Transmission Date: 20050211
  Serious: Yes (Other)
  Sender: FDA-Public Use
  Company Number: US_0409105340

PATIENT
  Age: 75 Year
  Sex: Female
  Weight: 63 kg

DRUGS (3)
  1. GEMZAR [Suspect]
     Indication: BLADDER CANCER
     Dates: start: 20020422, end: 20020601
  2. CISPLATIN [Concomitant]
  3. TAXOL [Concomitant]

REACTIONS (5)
  - ACUTE MYELOID LEUKAEMIA [None]
  - ANAEMIA [None]
  - PLATELET COUNT DECREASED [None]
  - TREATMENT RELATED SECONDARY MALIGNANCY [None]
  - WHITE BLOOD CELL COUNT DECREASED [None]
